FAERS Safety Report 13490996 (Version 1)
Quarter: 2017Q2

REPORT INFORMATION
  Report Type: Spontaneous
  Country: US (occurrence: US)
  Receive Date: 20170427
  Receipt Date: 20170427
  Transmission Date: 20170830
  Serious: Yes (Other)
  Sender: FDA-Public Use
  Company Number: US-TEVA-761449ACC

PATIENT
  Age: 26 Year
  Sex: Female
  Weight: 89.44 kg

DRUGS (1)
  1. EQ MICON 7 DISPOSAL [Suspect]
     Active Substance: MICONAZOLE
     Route: 065
     Dates: start: 20170408, end: 20170411

REACTIONS (1)
  - Chemical burn [Unknown]

NARRATIVE: CASE EVENT DATE: 20170412
